FAERS Safety Report 7038297-4 (Version None)
Quarter: 2010Q4

REPORT INFORMATION
  Report Type: 
  Country: None (occurrence: None)
  Receive Date: 20101011
  Receipt Date: 20091219
  Transmission Date: 20110411
  Serious: No
  Sender: FDA-Public Use
  Company Number: US-PFIZER INC-2009288933

PATIENT
  Sex: Female
  Weight: 72.6 kg

DRUGS (1)
  1. NEURONTIN [Suspect]
     Indication: NEURALGIA
     Dosage: 900MG A DAY
     Dates: start: 20050101

REACTIONS (2)
  - CHEST PAIN [None]
  - NAUSEA [None]
